FAERS Safety Report 5753214-2 (Version None)
Quarter: 2008Q2

REPORT INFORMATION
  Report Type: 
  Country: None (occurrence: None)
  Receive Date: 20080530
  Receipt Date: 20080521
  Transmission Date: 20081010
  Serious: Yes (Other)
  Sender: FDA-Public Use
  Company Number: US-JNJFOC-20080504827

PATIENT
  Sex: Female
  Weight: 54.43 kg

DRUGS (2)
  1. REMICADE [Suspect]
     Indication: COLITIS ULCERATIVE
     Dosage: 3-4 INFUSIONS ON UNKNOWN DATES BETWEEN SEP AND OCT 2007
     Route: 042
  2. ASACOL [Concomitant]
     Indication: COLITIS ULCERATIVE
     Dosage: 8 PILLS A DAY FOR 1 YEAR

REACTIONS (1)
  - COLECTOMY [None]
